FAERS Safety Report 15150233 (Version 1)
Quarter: 2018Q3

REPORT INFORMATION
  Report Type: Spontaneous
  Country: GB (occurrence: GB)
  Receive Date: 20180716
  Receipt Date: 20180716
  Transmission Date: 20181010
  Serious: Yes (Other)
  Sender: FDA-Public Use
  Company Number: GB-US WORLDMEDS, LLC-STA_00017314

PATIENT
  Age: 72 Year
  Sex: Female

DRUGS (1)
  1. APOMORPHINE HYDROCHLORIDE [Suspect]
     Active Substance: APOMORPHINE HYDROCHLORIDE
     Indication: PARKINSON^S DISEASE
     Dosage: 4 MG/HR FOR 24 HOURS PER DAY
     Route: 058
     Dates: start: 1999

REACTIONS (2)
  - Infusion site necrosis [Recovering/Resolving]
  - Infusion site infection [Recovering/Resolving]

NARRATIVE: CASE EVENT DATE: 20080201
